FAERS Safety Report 5837153-4 (Version None)
Quarter: 2008Q3

REPORT INFORMATION
  Report Type: 
  Country: None (occurrence: None)
  Receive Date: 20080807
  Receipt Date: 20080730
  Transmission Date: 20090109
  Serious: Yes (Hospitalization)
  Sender: FDA-Public Use
  Company Number: US-ABBOTT-08P-163-0467980-00

PATIENT
  Sex: Male
  Weight: 66.284 kg

DRUGS (8)
  1. HUMIRA [Suspect]
     Indication: REITER'S SYNDROME
     Route: 058
     Dates: start: 20070701, end: 20080714
  2. METHOTREXATE [Suspect]
     Indication: REITER'S SYNDROME
     Route: 048
     Dates: start: 20030101, end: 20080714
  3. AZATHIOPRINE [Suspect]
     Indication: REITER'S SYNDROME
     Route: 048
  4. AZATHIOPRINE [Suspect]
     Route: 048
     Dates: end: 20080401
  5. AZATHIOPRINE [Suspect]
     Route: 048
     Dates: start: 20080401, end: 20080714
  6. LIOTHYRONINE SODIUM [Concomitant]
     Indication: AUTOIMMUNE THYROIDITIS
     Route: 048
     Dates: start: 19970101
  7. PREDNISONE TAB [Concomitant]
     Indication: REITER'S SYNDROME
     Route: 048
     Dates: start: 20080720
  8. PREDNISONE TAB [Concomitant]
     Route: 048
     Dates: end: 20080719

REACTIONS (9)
  - ANAEMIA [None]
  - ASTHENIA [None]
  - CHEST PAIN [None]
  - DIZZINESS [None]
  - NEPHROLITHIASIS [None]
  - PANIC ATTACK [None]
  - PULMONARY NECROSIS [None]
  - PYREXIA [None]
  - WEIGHT DECREASED [None]
